FAERS Safety Report 16743177 (Version 7)
Quarter: 2022Q1

REPORT INFORMATION
  Report Type: Report from Study
  Country: PL (occurrence: None)
  Receive Date: 20190827
  Receipt Date: 20220109
  Transmission Date: 20220424
  Serious: Yes (Hospitalization, Disabling)
  Sender: FDA-Public Use
  Company Number: PL-ROCHE-2391197

PATIENT
  Age: 67 Year
  Sex: Female
  Weight: 55 kg

DRUGS (20)
  1. SIMLUKAFUSP ALFA [Suspect]
     Active Substance: SIMLUKAFUSP ALFA
     Indication: Neoplasm
     Dosage: DATE OF MOST RECENT DOSE OF RO6874281 PRIOR TO SAE ONSET: 19/AUG/2019 (AT 14:45), 10 MG
     Route: 042
     Dates: start: 20190617
  2. ATEZOLIZUMAB [Suspect]
     Active Substance: ATEZOLIZUMAB
     Indication: Neoplasm
     Dosage: DATE OF MOST RECENT DOSE OF ATEZOLIZUMAB PRIOR TO SAE ONSET: 19/AUG/2019 (AT 13:10)
     Route: 041
     Dates: start: 20190617
  3. ACETAMINOPHEN\TRAMADOL HYDROCHLORIDE [Concomitant]
     Active Substance: ACETAMINOPHEN\TRAMADOL HYDROCHLORIDE
     Indication: Pain
     Dates: start: 20190501, end: 20200415
  4. CALCIUM CHLORIDE\MAGNESIUM CHLORIDE\POTASSIUM CHLORIDE\SODIUM ACETATE\ [Concomitant]
     Active Substance: CALCIUM CHLORIDE\MAGNESIUM CHLORIDE\POTASSIUM CHLORIDE\SODIUM ACETATE\SODIUM CHLORIDE\SODIUM CITRATE
     Indication: Fatigue
     Dates: start: 20190709, end: 20190709
  5. CALCIUM CHLORIDE\MAGNESIUM CHLORIDE\POTASSIUM CHLORIDE\SODIUM ACETATE\ [Concomitant]
     Active Substance: CALCIUM CHLORIDE\MAGNESIUM CHLORIDE\POTASSIUM CHLORIDE\SODIUM ACETATE\SODIUM CHLORIDE\SODIUM CITRATE
     Dates: start: 20190621, end: 20190621
  6. CALCIUM CHLORIDE\MAGNESIUM CHLORIDE\POTASSIUM CHLORIDE\SODIUM ACETATE\ [Concomitant]
     Active Substance: CALCIUM CHLORIDE\MAGNESIUM CHLORIDE\POTASSIUM CHLORIDE\SODIUM ACETATE\SODIUM CHLORIDE\SODIUM CITRATE
     Dates: start: 20190730, end: 20190730
  7. CALCIUM CHLORIDE\MAGNESIUM CHLORIDE\POTASSIUM CHLORIDE\SODIUM ACETATE\ [Concomitant]
     Active Substance: CALCIUM CHLORIDE\MAGNESIUM CHLORIDE\POTASSIUM CHLORIDE\SODIUM ACETATE\SODIUM CHLORIDE\SODIUM CITRATE
     Dates: start: 20191002, end: 20191002
  8. CALCIUM CHLORIDE\MAGNESIUM CHLORIDE\POTASSIUM CHLORIDE\SODIUM ACETATE\ [Concomitant]
     Active Substance: CALCIUM CHLORIDE\MAGNESIUM CHLORIDE\POTASSIUM CHLORIDE\SODIUM ACETATE\SODIUM CHLORIDE\SODIUM CITRATE
     Dates: start: 20190729, end: 20190729
  9. KCL + NACL 0.9% [Concomitant]
     Indication: Premedication
     Dates: start: 20190709, end: 20190709
  10. KCL + NACL 0.9% [Concomitant]
     Dates: start: 20190819, end: 20190819
  11. FEROPLEX [Concomitant]
     Indication: Anaemia
     Dates: start: 20190619, end: 20190721
  12. ESTAZOLAM [Concomitant]
     Active Substance: ESTAZOLAM
     Indication: Insomnia
     Dates: start: 20190826, end: 20190829
  13. ESTAZOLAM [Concomitant]
     Active Substance: ESTAZOLAM
     Dates: start: 20190901, end: 20190901
  14. ESTAZOLAM [Concomitant]
     Active Substance: ESTAZOLAM
     Dates: start: 20190819, end: 20190819
  15. ACETAMINOPHEN [Concomitant]
     Active Substance: ACETAMINOPHEN
     Indication: Premedication
     Dates: start: 20190819, end: 20190820
  16. MONOVER (POLAND) [Concomitant]
     Indication: Anaemia
     Dates: start: 20190722, end: 20190722
  17. KETONAL (POLAND) [Concomitant]
     Indication: Pyrexia
     Dates: start: 20190729, end: 20190729
  18. ONDANSETRON [Concomitant]
     Active Substance: ONDANSETRON
     Indication: Vomiting
     Dates: start: 20190729, end: 20190729
  19. LOPERAMIDE [Concomitant]
     Active Substance: LOPERAMIDE
     Indication: Rectal tenesmus
     Dates: start: 20190810
  20. METOCLOPRAMIDUM [Concomitant]
     Indication: Vomiting
     Dates: start: 20190820, end: 20190820

REACTIONS (1)
  - Female genital tract fistula [Recovered/Resolved]

NARRATIVE: CASE EVENT DATE: 20190820
